FAERS Safety Report 24083494 (Version 2)
Quarter: 2024Q3

REPORT INFORMATION
  Report Type: Spontaneous
  Country: BR (occurrence: BR)
  Receive Date: 20240712
  Receipt Date: 20240724
  Transmission Date: 20241016
  Serious: No
  Sender: CELLTRION
  Company Number: BR-CELLTRION INC.-2023BR012605

PATIENT

DRUGS (4)
  1. INFLIXIMAB [Suspect]
     Active Substance: INFLIXIMAB
     Indication: Ankylosing spondylitis
     Dosage: 2 AMPOULES (ATTACK DOSE), EVERY 8 WEEKS
     Route: 042
     Dates: start: 20230606
  2. INFLIXIMAB [Suspect]
     Active Substance: INFLIXIMAB
     Dosage: 250 MG EVERY 6 WEEKS(WAS 2 AMPOULES EVERY 8 WEEKS)
     Route: 042
     Dates: start: 20230606
  3. INFLIXIMAB [Suspect]
     Active Substance: INFLIXIMAB
     Dosage: 250 MG EVERY 6 WEEKS (WAS 2 AMPOULES EVERY 8 WEEKS)
     Route: 042
     Dates: start: 202312
  4. ROSUVASTATIN [Concomitant]
     Active Substance: ROSUVASTATIN
     Indication: Cardiovascular event prophylaxis
     Dosage: 10 MG, QD (START DATE: 4 MONTHS AGO)
     Route: 048

REACTIONS (8)
  - Emotional disorder [Unknown]
  - Stress [Unknown]
  - Rhinorrhoea [Not Recovered/Not Resolved]
  - Influenza [Not Recovered/Not Resolved]
  - Cough [Not Recovered/Not Resolved]
  - Oropharyngeal pain [Not Recovered/Not Resolved]
  - Product storage error [Unknown]
  - Overdose [Unknown]

NARRATIVE: CASE EVENT DATE: 20230611
